FAERS Safety Report 4433967-6 (Version None)
Quarter: 2004Q3

REPORT INFORMATION
  Report Type: 
  Country: None (occurrence: None)
  Receive Date: 20040825
  Receipt Date: 20040809
  Transmission Date: 20050211
  Serious: Yes (Other)
  Sender: FDA-Public Use
  Company Number: USA040875043

PATIENT
  Age: 42 Year
  Sex: Female

DRUGS (1)
  1. SARAFEM [Suspect]
     Indication: FEELING JITTERY
     Dosage: 20 MG/1 OTHER
     Route: 050
     Dates: start: 20040601, end: 20040601

REACTIONS (4)
  - FEELING ABNORMAL [None]
  - HEART RATE INCREASED [None]
  - NERVOUSNESS [None]
  - PANIC ATTACK [None]
